FAERS Safety Report 19404059 (Version 3)
Quarter: 2022Q3

REPORT INFORMATION
  Report Type: Spontaneous
  Country: US (occurrence: US)
  Receive Date: 20210610
  Receipt Date: 20220817
  Transmission Date: 20221027
  Serious: Yes (Other)
  Sender: FDA-Public Use
  Company Number: US-SA-2021SA194007

PATIENT
  Sex: Female

DRUGS (7)
  1. DUPIXENT [Suspect]
     Active Substance: DUPILUMAB
     Indication: Asthma
     Dosage: 300 MG, QOW
     Route: 058
  2. AMICAR [Concomitant]
     Active Substance: AMINOCAPROIC ACID
  3. LASIX [Concomitant]
     Active Substance: FUROSEMIDE
  4. CYCLOSPORINE [Concomitant]
     Active Substance: CYCLOSPORINE
  5. PROCRIT [Concomitant]
     Active Substance: ERYTHROPOIETIN
     Dosage: UNK UNK, QD
  6. NPLATE [Concomitant]
     Active Substance: ROMIPLOSTIM
     Dosage: UNK UNK, Q5D
  7. RITUXAN [Concomitant]
     Active Substance: RITUXIMAB

REACTIONS (2)
  - Acquired amegakaryocytic thrombocytopenia [Unknown]
  - Product dose omission issue [Unknown]
